FAERS Safety Report 11370736 (Version 3)
Quarter: 2015Q3

REPORT INFORMATION
  Report Type: Spontaneous
  Country: US (occurrence: US)
  Receive Date: 20150812
  Receipt Date: 20150821
  Transmission Date: 20151125
  Serious: No
  Sender: FDA-Public Use
  Company Number: ALCN2015US004433

PATIENT
  Age: 50 Year
  Sex: Female
  Weight: 46.71 kg

DRUGS (1)
  1. CIPRODEX [Suspect]
     Active Substance: CIPROFLOXACIN HYDROCHLORIDE\DEXAMETHASONE
     Indication: INFECTION
     Dosage: 1 GTT, BID
     Route: 001
     Dates: start: 201505

REACTIONS (5)
  - Erythema [Unknown]
  - Ear pain [Recovered/Resolved]
  - Rash [Recovered/Resolved]
  - Ear pruritus [Unknown]
  - Ear discomfort [Recovered/Resolved]

NARRATIVE: CASE EVENT DATE: 201505
